FAERS Safety Report 5494432-0 (Version None)
Quarter: 2007Q4

REPORT INFORMATION
  Report Type: 
  Country: None (occurrence: None)
  Receive Date: 20071022
  Receipt Date: 20071022
  Transmission Date: 20080405
  Serious: Yes (Hospitalization)
  Sender: FDA-Public Use
  Company Number: None

PATIENT
  Age: 42 Year
  Sex: Female
  Weight: 68.0396 kg

DRUGS (1)
  1. CLINDAMYCIN HCL [Suspect]
     Indication: TOOTH INFECTION
     Dosage: 300 MG EVERY 6 HOURS PO
     Route: 048
     Dates: start: 20071009, end: 20071009

REACTIONS (12)
  - ASTHMA [None]
  - CHEST PAIN [None]
  - DERMATITIS CONTACT [None]
  - DYSPNOEA [None]
  - GASTRITIS [None]
  - HYPERHIDROSIS [None]
  - LIP SWELLING [None]
  - NAUSEA [None]
  - OESOPHAGEAL SPASM [None]
  - THROAT IRRITATION [None]
  - TYPE IV HYPERSENSITIVITY REACTION [None]
  - WHEEZING [None]
